FAERS Safety Report 9192213 (Version 1)
Quarter: 2013Q1

REPORT INFORMATION
  Report Type: Spontaneous
  Country: CN (occurrence: CN)
  Receive Date: 20130327
  Receipt Date: 20130327
  Transmission Date: 20140127
  Serious: Yes (Death, Hospitalization)
  Sender: FDA-Public Use
  Company Number: PHHY2013CN028995

PATIENT
  Age: 22 Year
  Sex: Male

DRUGS (6)
  1. CLOZAPINE [Suspect]
     Indication: SCHIZOPHRENIA
     Dosage: 500 MG, QD
  2. HEPARIN [Concomitant]
     Dosage: UNK
  3. ENOXAPARIN [Concomitant]
     Dosage: 0.4 ML, BID
     Route: 058
  4. NICOUMALONE [Concomitant]
     Dosage: 2.5 MG, QD
  5. CARBAMAZEPINE [Concomitant]
     Dosage: 600 MG, QD
  6. SOMATOSTATIN [Concomitant]
     Dosage: UNK UKN, UNK
     Route: 042

REACTIONS (13)
  - Death [Fatal]
  - Multi-organ failure [Unknown]
  - Haemorrhagic cerebral infarction [Unknown]
  - Papilloedema [Unknown]
  - Coma [Unknown]
  - Status epilepticus [Unknown]
  - Portal vein thrombosis [Unknown]
  - Transverse sinus thrombosis [Unknown]
  - Superior sagittal sinus thrombosis [Unknown]
  - Local swelling [Unknown]
  - Deep vein thrombosis [Unknown]
  - Hypotension [Unknown]
  - Grand mal convulsion [Unknown]
